FAERS Safety Report 14462284 (Version 1)
Quarter: 2018Q1

REPORT INFORMATION
  Report Type: Spontaneous
  Country: US (occurrence: US)
  Receive Date: 20180130
  Receipt Date: 20180130
  Transmission Date: 20180509
  Serious: No
  Sender: FDA-Public Use
  Company Number: US-BAUSCH-BL-2017-019127

PATIENT
  Age: 26 Year
  Sex: Female
  Weight: 52.21 kg

DRUGS (3)
  1. VERAPAMIL [Concomitant]
     Active Substance: VERAPAMIL HYDROCHLORIDE
     Indication: MIGRAINE
  2. DIHYDROERGOTAMINE MESYLATE. [Suspect]
     Active Substance: DIHYDROERGOTAMINE MESYLATE
     Indication: MIGRAINE
     Dosage: ONE SPRAY IN EACH NOSTRIL AS NEEDED REPEATED IN 15 MINUTES, UP TO TWO TIMES A WEEK
     Route: 050
     Dates: start: 2016
  3. KEPPRA [Concomitant]
     Active Substance: LEVETIRACETAM
     Indication: MIGRAINE

REACTIONS (2)
  - No adverse event [Unknown]
  - Product storage error [Unknown]

NARRATIVE: CASE EVENT DATE: 20170608
